FAERS Safety Report 7784173-9 (Version None)
Quarter: 2011Q3

REPORT INFORMATION
  Report Type: 
  Country: None (occurrence: None)
  Receive Date: 20110928
  Receipt Date: 20110915
  Transmission Date: 20111222
  Serious: Yes (Other)
  Sender: FDA-Public Use
  Company Number: US-ELI_LILLY_AND_COMPANY-US201109005133

PATIENT
  Sex: Female

DRUGS (5)
  1. VICODIN [Concomitant]
  2. FORTEO [Suspect]
     Indication: OSTEOPOROSIS
     Dosage: 20 UG, QD
     Dates: start: 20100601
  3. AMITRIPTYLINE HCL [Concomitant]
  4. SYNTHROID [Concomitant]
  5. GABAPENTIN [Concomitant]
     Dosage: UNK

REACTIONS (5)
  - FALL [None]
  - HYPOAESTHESIA [None]
  - VERTIGO [None]
  - LOSS OF CONSCIOUSNESS [None]
  - WRIST FRACTURE [None]
